FAERS Safety Report 22103866 (Version 1)
Quarter: 2023Q1

REPORT INFORMATION
  Report Type: Spontaneous
  Country: SE (occurrence: SE)
  Receive Date: 20230316
  Receipt Date: 20230316
  Transmission Date: 20230418
  Serious: Yes (Hospitalization)
  Sender: FDA-Public Use
  Company Number: None

PATIENT
  Age: 40 Year
  Sex: Female

DRUGS (3)
  1. VENLAFAXINE [Suspect]
     Active Substance: VENLAFAXINE HYDROCHLORIDE
     Indication: Product used for unknown indication
     Dosage: VENLAFAXINE 150 MG, 105 TAB, FREQUENCY TIME : 1 TOTAL, UNIT DOSE : 15750 MG
     Route: 065
     Dates: start: 20190915, end: 20190915
  2. ATARAX [Suspect]
     Active Substance: HYDROXYZINE HYDROCHLORIDE
     Indication: Product used for unknown indication
     Dosage: 28 PIECES OF ATARAX 25 MG, UNIT DOSE : 700 MG,  FREQUENCY TIME : 1 TOTAL
     Dates: start: 20190915, end: 20190915
  3. LAMICTAL [Suspect]
     Active Substance: LAMOTRIGINE
     Indication: Product used for unknown indication
     Dosage: 21 PCS LAMICTAL 200 MG, UNIT DOSE : 4200 MG,  FREQUENCY TIME : 1 TOTAL
     Dates: start: 20190915, end: 20190915

REACTIONS (4)
  - Clonus [Unknown]
  - Intentional overdose [Unknown]
  - Seizure [Unknown]
  - Intentional self-injury [Unknown]

NARRATIVE: CASE EVENT DATE: 20190915
